FAERS Safety Report 8403143-0 (Version None)
Quarter: 2012Q2

REPORT INFORMATION
  Report Type: 
  Country: None (occurrence: None)
  Receive Date: 20120601
  Receipt Date: 20120522
  Transmission Date: 20120825
  Serious: Yes (Hospitalization)
  Sender: FDA-Public Use
  Company Number: FR-ELI_LILLY_AND_COMPANY-FR201205007263

PATIENT
  Sex: Male

DRUGS (5)
  1. ALIMTA [Suspect]
     Indication: LUNG ADENOCARCINOMA
     Dosage: 1000 MG, UNK
     Route: 042
     Dates: start: 20120221
  2. ALIMTA [Suspect]
     Dosage: 800 MG, UNK
     Route: 042
     Dates: start: 20120313
  3. CISPLATIN [Concomitant]
     Indication: LUNG ADENOCARCINOMA
     Dosage: 150 MG, UNK
     Dates: start: 20120221
  4. CISPLATIN [Concomitant]
     Dosage: 154 MG, UNK
     Dates: start: 20120313
  5. NEULASTA [Concomitant]
     Dosage: UNK
     Dates: start: 20120314, end: 20120314

REACTIONS (5)
  - COLITIS [None]
  - NEPHROTIC SYNDROME [None]
  - SEPSIS [None]
  - DEHYDRATION [None]
  - PANCYTOPENIA [None]
